FAERS Safety Report 6055726-3 (Version None)
Quarter: 2009Q1

REPORT INFORMATION
  Report Type: 
  Country: None (occurrence: None)
  Receive Date: 20090128
  Receipt Date: 20090121
  Transmission Date: 20090719
  Serious: Yes (Hospitalization)
  Sender: FDA-Public Use
  Company Number: JP-SANOFI-SYNTHELABO-A01200816267

PATIENT
  Sex: Male
  Weight: 51 kg

DRUGS (5)
  1. LAXOBERON [Concomitant]
     Indication: CONSTIPATION
     Route: 048
     Dates: start: 20081125, end: 20090115
  2. MAGMITT [Concomitant]
     Indication: CONSTIPATION
     Route: 048
     Dates: start: 20081125, end: 20090115
  3. RADICUT [Concomitant]
     Indication: CEREBRAL THROMBOSIS
     Dosage: UNK
     Route: 065
     Dates: end: 20081124
  4. ARGATROBAN [Concomitant]
     Indication: CEREBRAL THROMBOSIS
     Dosage: UNK
     Route: 065
     Dates: end: 20081124
  5. PLAVIX [Suspect]
     Indication: CEREBRAL THROMBOSIS
     Route: 048
     Dates: start: 20081126, end: 20081202

REACTIONS (5)
  - ALANINE AMINOTRANSFERASE INCREASED [None]
  - ASPARTATE AMINOTRANSFERASE INCREASED [None]
  - BLOOD ALKALINE PHOSPHATASE INCREASED [None]
  - CHOLESTASIS [None]
  - HEPATIC FUNCTION ABNORMAL [None]
